FAERS Safety Report 5955929-X (Version None)
Quarter: 2008Q4

REPORT INFORMATION
  Report Type: 
  Country: None (occurrence: None)
  Receive Date: 20081112
  Receipt Date: 20081103
  Transmission Date: 20090506
  Serious: Yes (Disabling)
  Sender: FDA-Public Use
  Company Number: 2008SP002748

PATIENT
  Age: 37 Year
  Sex: Male

DRUGS (6)
  1. LUNESTA [Suspect]
     Indication: INSOMNIA
     Dosage: 4 MG;1X;ORAL
     Route: 048
     Dates: start: 20081024, end: 20081024
  2. PROZAC [Concomitant]
  3. VICODIN [Concomitant]
  4. METHADONE HCL [Concomitant]
  5. FLEXERIL [Concomitant]
  6. AMBIEN [Concomitant]

REACTIONS (3)
  - LEGAL PROBLEM [None]
  - MEMORY IMPAIRMENT [None]
  - SOMNAMBULISM [None]
